FAERS Safety Report 19705222 (Version 1)
Quarter: 2021Q3

REPORT INFORMATION
  Report Type: Report from Study
  Country: FR (occurrence: FR)
  Receive Date: 20210816
  Receipt Date: 20210816
  Transmission Date: 20211014
  Serious: Yes (Other)
  Sender: FDA-Public Use
  Company Number: NVSC2020FR278013

PATIENT
  Age: 1 Year
  Sex: Female
  Weight: 10.6 kg

DRUGS (10)
  1. HEXYON [Concomitant]
     Active Substance: DIPHTHERIA AND TETANUS TOXOIDS AND ACELLULAR PERTUSSIS ADSORBED, INACTIVATED POLIOVIRUS AND HAEMOPHILUS B CONJUGATE AND HEPATITIS B VIRUS VACCINE
     Indication: HAEMOPHILUS INFECTION
  2. ZOLGENSMA [Suspect]
     Active Substance: ONASEMNOGENE ABEPARVOVEC-XIOI
     Indication: SPINAL MUSCULAR ATROPHY
     Dosage: 49.5 ML (99X10E3 COPIES) (9.9X10E14)
     Route: 042
     Dates: start: 20200327
  3. PRIORIX [Concomitant]
     Active Substance: MEASLES-MUMPS-RUBELLA VIRUS VACCINE
     Indication: MEASLES
     Dosage: UNK
     Route: 065
     Dates: start: 20200914, end: 20200914
  4. HEXYON [Concomitant]
     Active Substance: DIPHTHERIA AND TETANUS TOXOIDS AND ACELLULAR PERTUSSIS ADSORBED, INACTIVATED POLIOVIRUS AND HAEMOPHILUS B CONJUGATE AND HEPATITIS B VIRUS VACCINE
     Indication: POLIOMYELITIS
  5. NEISVAC?C [Concomitant]
     Active Substance: MENINGOCOCCAL POLYSACCHARIDE VACCINE C
     Indication: MENINGOCOCCAL INFECTION
     Dosage: UNK
     Route: 065
     Dates: start: 20200914, end: 20200914
  6. PRIORIX [Concomitant]
     Active Substance: MEASLES-MUMPS-RUBELLA VIRUS VACCINE
     Indication: MUMPS
  7. PREVENAR [Concomitant]
     Active Substance: PNEUMOCOCCAL 7-VALENT CONJUGATE VACCINE (DIPHTHERIA CRM197 PROTEIN)
     Indication: PNEUMOCOCCAL INFECTION
     Dosage: UNK
     Route: 065
     Dates: start: 20200716, end: 20200716
  8. PRIORIX [Concomitant]
     Active Substance: MEASLES-MUMPS-RUBELLA VIRUS VACCINE
     Indication: RUBELLA
  9. HEXYON [Concomitant]
     Active Substance: DIPHTHERIA AND TETANUS TOXOIDS AND ACELLULAR PERTUSSIS ADSORBED, INACTIVATED POLIOVIRUS AND HAEMOPHILUS B CONJUGATE AND HEPATITIS B VIRUS VACCINE
     Indication: DIPHTHERIA
     Dosage: UNK
     Route: 065
     Dates: start: 20200716, end: 20200716
  10. HEXYON [Concomitant]
     Active Substance: DIPHTHERIA AND TETANUS TOXOIDS AND ACELLULAR PERTUSSIS ADSORBED, INACTIVATED POLIOVIRUS AND HAEMOPHILUS B CONJUGATE AND HEPATITIS B VIRUS VACCINE
     Indication: HEPATITIS B

REACTIONS (13)
  - Neutropenia [Unknown]
  - Eosinophil count increased [Not Recovered/Not Resolved]
  - Constipation [Not Recovered/Not Resolved]
  - Troponin I increased [Unknown]
  - Red blood cell count increased [Unknown]
  - Haemoglobin increased [Not Recovered/Not Resolved]
  - Underdose [Unknown]
  - Mean cell volume decreased [Unknown]
  - Mean cell haemoglobin concentration increased [Unknown]
  - Blood creatinine decreased [Unknown]
  - Transaminases increased [Unknown]
  - Platelet count decreased [Unknown]
  - Blood creatine phosphokinase increased [Unknown]

NARRATIVE: CASE EVENT DATE: 20200905
